FAERS Safety Report 4320131-4 (Version None)
Quarter: 2004Q1

REPORT INFORMATION
  Report Type: 
  Country: None (occurrence: None)
  Receive Date: 20040317
  Receipt Date: 20040303
  Transmission Date: 20041129
  Serious: Yes (Death)
  Sender: FDA-Public Use
  Company Number: 02100-JPN-04-0046

PATIENT
  Age: 67 Year
  Sex: Male

DRUGS (2)
  1. CILOSTAZOL [Suspect]
     Indication: CEREBRAL ARTERY EMBOLISM
     Dosage: 200 MG, ORAL
     Route: 048
     Dates: start: 20040110, end: 20040225
  2. ASPIRIN [Suspect]
     Dosage: 100 MG, ORAL
     Route: 048
     Dates: start: 20040110, end: 20040225

REACTIONS (3)
  - BRAIN HERNIATION [None]
  - CEREBRAL HAEMORRHAGE [None]
  - HYDROCEPHALUS [None]
